FAERS Safety Report 20682330 (Version 1)
Quarter: 2022Q2

REPORT INFORMATION
  Report Type: Spontaneous
  Country: HR (occurrence: HR)
  Receive Date: 20220407
  Receipt Date: 20220407
  Transmission Date: 20220721
  Serious: Yes (Other)
  Sender: FDA-Public Use
  Company Number: None

PATIENT
  Age: 45 Year
  Sex: Male

DRUGS (4)
  1. PANTOPRAZOLE [Suspect]
     Active Substance: PANTOPRAZOLE
     Dosage: 760MG, FREQUENCY TIME 1DAYS, DURATION 1DAYS
     Route: 048
     Dates: start: 202110, end: 202110
  2. IBUPROFEN [Suspect]
     Active Substance: IBUPROFEN
     Dosage: 18GM, FREQUENCY TIME 1DYAS, DURATION 1DAYS
     Route: 048
     Dates: start: 202110, end: 202110
  3. ACETAMINOPHEN\TRAMADOL HYDROCHLORIDE [Suspect]
     Active Substance: ACETAMINOPHEN\TRAMADOL HYDROCHLORIDE
     Dosage: DF= 75 MG TRAMADOL HYDROCHLORIDE + 650 MG PARACETAMOL, 60DF, FREQUENCY TIME 1DAYS, DURATION 1DAYS, A
     Route: 048
     Dates: start: 202110, end: 202110
  4. ZOLPIDEM TARTRATE [Suspect]
     Active Substance: ZOLPIDEM TARTRATE
     Dosage: 150MG, FREQUENCY TIME 1DAYS, DURATION 1DAYS
     Route: 048
     Dates: start: 202110, end: 202110

REACTIONS (3)
  - Agitation [Unknown]
  - Intentional overdose [Unknown]
  - Suicide attempt [Unknown]

NARRATIVE: CASE EVENT DATE: 20211001
